FAERS Safety Report 5690651-9 (Version None)
Quarter: 2008Q1

REPORT INFORMATION
  Report Type: 
  Country: None (occurrence: None)
  Receive Date: 20080331
  Receipt Date: 20080331
  Transmission Date: 20080703
  Serious: Yes (Other)
  Sender: FDA-Public Use
  Company Number: None

PATIENT
  Age: 16 Year
  Sex: Male
  Weight: 65.7716 kg

DRUGS (2)
  1. SINGULAIR [Suspect]
     Indication: ASTHMA
     Dosage: 10MG ONCE A DAY PO
     Route: 048
     Dates: start: 20020101, end: 20080328
  2. SINGULAIR [Suspect]
     Indication: SEASONAL ALLERGY
     Dosage: 10MG ONCE A DAY PO
     Route: 048
     Dates: start: 20020101, end: 20080328

REACTIONS (3)
  - ANXIETY [None]
  - INSOMNIA [None]
  - PARANOIA [None]
